FAERS Safety Report 19674165 (Version 4)
Quarter: 2021Q3

REPORT INFORMATION
  Report Type: Report from Study
  Country: None (occurrence: AU)
  Receive Date: 20210809
  Receipt Date: 20210819
  Transmission Date: 20211014
  Serious: Yes (Hospitalization)
  Sender: FDA-Public Use
  Company Number: AU-ABBVIE-21K-008-4026590-00

PATIENT
  Sex: Male

DRUGS (2)
  1. DUODOPA [Suspect]
     Active Substance: CARBIDOPA\LEVODOPA
  2. DUODOPA [Suspect]
     Active Substance: CARBIDOPA\LEVODOPA
     Indication: PARKINSON^S DISEASE
     Route: 050
     Dates: start: 20210727

REACTIONS (5)
  - Stoma site erythema [Unknown]
  - Stoma site infection [Unknown]
  - Stoma site discharge [Unknown]
  - Medical device site exfoliation [Unknown]
  - Medical device site burn [Unknown]

NARRATIVE: CASE EVENT DATE: 2021
